FAERS Safety Report 4510842-X (Version None)
Quarter: 2004Q4

REPORT INFORMATION
  Report Type: 
  Country: None (occurrence: None)
  Receive Date: 20041122
  Receipt Date: 20021011
  Transmission Date: 20050328
  Serious: Yes (Hospitalization)
  Sender: FDA-Public Use
  Company Number: 2004BL007418

PATIENT
  Age: 15 Year
  Sex: Male

DRUGS (4)
  1. ATROPINE SULFATE [Suspect]
     Dosage: OPHTHALMIC
     Route: 047
  2. ACYCLOVIR [Concomitant]
  3. LABETALOL [Concomitant]
  4. PABRINEX [Concomitant]

REACTIONS (6)
  - ABNORMAL BEHAVIOUR [None]
  - CATATONIA [None]
  - CONSTIPATION [None]
  - HYPERTENSION [None]
  - URINARY INCONTINENCE [None]
  - VENTRICULAR DYSFUNCTION [None]
